FAERS Safety Report 7027200-9 (Version None)
Quarter: 2010Q4

REPORT INFORMATION
  Report Type: 
  Country: None (occurrence: None)
  Receive Date: 20101004
  Receipt Date: 20100920
  Transmission Date: 20110411
  Serious: Yes (Death)
  Sender: FDA-Public Use
  Company Number: US-MYLANLABS-2010S1017176

PATIENT
  Age: 43 Year
  Sex: Female

DRUGS (1)
  1. WARFARIN SODIUM [Suspect]
     Route: 065

REACTIONS (2)
  - SEPTIC SHOCK [None]
  - SKIN NECROSIS [None]
